FAERS Safety Report 9776321 (Version 2)
Quarter: 2013Q4

REPORT INFORMATION
  Report Type: Spontaneous
  Country: US (occurrence: US)
  Receive Date: 20131220
  Receipt Date: 20131230
  Transmission Date: 20140711
  Serious: No
  Sender: FDA-Public Use
  Company Number: US-VERTEX PHARMACEUTICALS INC-2013-011764

PATIENT
  Age: 55 Year
  Sex: Male
  Weight: 86 kg

DRUGS (3)
  1. INCIVEK [Suspect]
     Indication: HEPATITIS C
     Dosage: 750 MG, TID
     Route: 048
     Dates: start: 20131207
  2. RIBAVIRIN [Suspect]
     Indication: HEPATITIS C
     Dosage: 600 MG, BID
     Dates: start: 20131207
  3. PEGASYS [Suspect]
     Indication: HEPATITIS C
     Dosage: 180 ?G, QW
     Route: 058
     Dates: start: 20131207

REACTIONS (13)
  - Incorrect drug administration duration [Recovered/Resolved]
  - Dizziness [Not Recovered/Not Resolved]
  - Pyrexia [Recovered/Resolved]
  - Eye irritation [Not Recovered/Not Resolved]
  - Decreased appetite [Recovered/Resolved]
  - Weight decreased [Unknown]
  - Rectal haemorrhage [Recovered/Resolved]
  - Anorectal discomfort [Recovered/Resolved]
  - Rash [Not Recovered/Not Resolved]
  - Anal pruritus [Recovered/Resolved]
  - Nausea [Recovered/Resolved]
  - Erythema [Not Recovered/Not Resolved]
  - Pruritus [Recovered/Resolved]
